FAERS Safety Report 6249367-2 (Version None)
Quarter: 2009Q2

REPORT INFORMATION
  Report Type: 
  Country: None (occurrence: None)
  Receive Date: 20090625
  Receipt Date: 20090625
  Transmission Date: 20091009
  Serious: Yes (Life-Threatening, Hospitalization, Disabling)
  Sender: FDA-Public Use
  Company Number: None

PATIENT
  Age: 42 Year
  Sex: Female
  Weight: 61.2356 kg

DRUGS (1)
  1. AYGESTIN [Suspect]
     Indication: MENSTRUATION IRREGULAR
     Dosage: 5 MG. 2 TABS/2X DAY - M. PO
     Route: 048
     Dates: start: 20081124, end: 20081205

REACTIONS (1)
  - HAEMORRHAGIC STROKE [None]
